FAERS Safety Report 9139238 (Version 1)
Quarter: 2013Q1

REPORT INFORMATION
  Report Type: Spontaneous
  Country: CA (occurrence: CA)
  Receive Date: 20130305
  Receipt Date: 20130305
  Transmission Date: 20140127
  Serious: Yes (Other)
  Sender: FDA-Public Use
  Company Number: PHHY2013CA021049

PATIENT
  Sex: Female

DRUGS (2)
  1. DESFERAL [Suspect]
     Indication: IRON OVERLOAD
     Dosage: UNK UKN, UNK
     Route: 058
  2. FOLIC ACID [Concomitant]
     Dosage: 5 MG, QD
     Route: 048

REACTIONS (2)
  - Splenic infarction [Unknown]
  - Drug intolerance [Unknown]
